FAERS Safety Report 10152777 (Version 3)
Quarter: 2014Q4

REPORT INFORMATION
  Report Type: Spontaneous
  Country: FR (occurrence: FR)
  Receive Date: 20140505
  Receipt Date: 20141210
  Transmission Date: 20150528
  Serious: Yes (Death, Life-Threatening, Hospitalization)
  Sender: FDA-Public Use
  Company Number: FR-PFIZER INC-2012066768

PATIENT
  Age: 56 Year
  Sex: Female

DRUGS (2)
  1. TRIFLUCAN [Suspect]
     Active Substance: FLUCONAZOLE
     Indication: FUNGAL INFECTION
     Dosage: 1 DF, 1X/DAY
     Dates: start: 20110206, end: 20120209
  2. PLX4032 [Suspect]
     Active Substance: VEMURAFENIB
     Indication: MALIGNANT MELANOMA
     Dosage: 240 MG, 8/XDAY
     Route: 048
     Dates: start: 20120111, end: 20120209

REACTIONS (3)
  - Cholestasis [Fatal]
  - Hepatocellular injury [Fatal]
  - Hepatic failure [Fatal]

NARRATIVE: CASE EVENT DATE: 20120209
